FAERS Safety Report 7625510-5 (Version None)
Quarter: 2011Q3

REPORT INFORMATION
  Report Type: 
  Country: None (occurrence: None)
  Receive Date: 20110721
  Receipt Date: 20100816
  Transmission Date: 20111222
  Serious: No
  Sender: FDA-Public Use
  Company Number: US-KINGPHARMUSA00001-K201001043

PATIENT
  Age: 47 Year
  Sex: Female

DRUGS (4)
  1. SEPTRA [Suspect]
     Indication: SKIN INFECTION
     Dosage: UNK
     Dates: start: 20100719, end: 20100720
  2. CLINDAMYCIN [Suspect]
     Indication: SKIN INFECTION
     Dosage: UNK
     Dates: start: 20100721
  3. LUNESTA [Suspect]
     Dosage: 3 MG, UNK
     Route: 048
     Dates: start: 20100723, end: 20100726
  4. LUNESTA [Suspect]
     Indication: INSOMNIA
     Dosage: 2 MG, UNK
     Route: 048
     Dates: start: 20100719, end: 20100722

REACTIONS (5)
  - NAUSEA [None]
  - DYSGEUSIA [None]
  - MUSCLE SPASMS [None]
  - VULVOVAGINAL MYCOTIC INFECTION [None]
  - HEADACHE [None]
